FAERS Safety Report 13778408 (Version 1)
Quarter: 2017Q3

REPORT INFORMATION
  Report Type: Spontaneous
  Country: FR (occurrence: FR)
  Receive Date: 20170721
  Receipt Date: 20170721
  Transmission Date: 20171127
  Serious: Yes (Death)
  Sender: FDA-Public Use
  Company Number: FR-ROCHE-1965166

PATIENT
  Age: 52 Year
  Sex: Female

DRUGS (1)
  1. MABTHERA [Suspect]
     Active Substance: RITUXIMAB
     Indication: CRYOGLOBULINAEMIA
     Dosage: 2 INFUSIONS
     Route: 042
     Dates: start: 20170609, end: 20170616

REACTIONS (4)
  - Off label use [Fatal]
  - Product use in unapproved indication [Fatal]
  - Hypokalaemia [Fatal]
  - Vomiting [Fatal]

NARRATIVE: CASE EVENT DATE: 20170618
